FAERS Safety Report 20191885 (Version 1)
Quarter: 2021Q4

REPORT INFORMATION
  Report Type: Spontaneous
  Country: US (occurrence: US)
  Receive Date: 20211216
  Receipt Date: 20211216
  Transmission Date: 20220303
  Serious: No
  Sender: FDA-Public Use
  Company Number: US-ENDO PHARMACEUTICALS INC-2020-002249

PATIENT
  Age: 57 Year
  Sex: Male
  Weight: 80.726 kg

DRUGS (10)
  1. XIAFLEX [Suspect]
     Active Substance: COLLAGENASE CLOSTRIDIUM HISTOLYTICUM
     Indication: Peyronie^s disease
     Dosage: UNK UNKNOWN, UNKNOWN; CYCLE ONE, INJECTION ONE
     Route: 026
     Dates: start: 20191014
  2. XIAFLEX [Suspect]
     Active Substance: COLLAGENASE CLOSTRIDIUM HISTOLYTICUM
     Dosage: UNK UNKNOWN, UNKNOWN; CYCLE ONE, INJECTION TWO
     Route: 026
     Dates: start: 20191016
  3. SYMBICORT [Concomitant]
     Active Substance: BUDESONIDE\FORMOTEROL FUMARATE DIHYDRATE
     Indication: Chronic obstructive pulmonary disease
     Dosage: UNK
     Dates: start: 2015
  4. INCRUSE ELLIPTA [Concomitant]
     Active Substance: UMECLIDINIUM BROMIDE
     Indication: Chronic obstructive pulmonary disease
  5. DILTIAZEM [Concomitant]
     Active Substance: DILTIAZEM
     Indication: Hypertension
  6. DILTIAZEM [Concomitant]
     Active Substance: DILTIAZEM
     Indication: Oesophageal spasm
  7. ALPRAZOLAM [Concomitant]
     Active Substance: ALPRAZOLAM
     Indication: Product used for unknown indication
  8. HYDROCODONE [Concomitant]
     Active Substance: HYDROCODONE
     Indication: Product used for unknown indication
  9. AZITHROMYCIN [Concomitant]
     Active Substance: AZITHROMYCIN
     Indication: Product used for unknown indication
  10. VENTOLIN [Concomitant]
     Active Substance: ALBUTEROL SULFATE
     Indication: Product used for unknown indication

REACTIONS (3)
  - Wrong technique in product usage process [Unknown]
  - Drug ineffective [Unknown]
  - Condition aggravated [Unknown]

NARRATIVE: CASE EVENT DATE: 20191001
